FAERS Safety Report 23638650 (Version 2)
Quarter: 2024Q1

REPORT INFORMATION
  Report Type: Spontaneous
  Country: IT (occurrence: IT)
  Receive Date: 20240315
  Receipt Date: 20240319
  Transmission Date: 20240410
  Serious: Yes (Other)
  Sender: FDA-Public Use
  Company Number: IT-MINISAL02-958975

PATIENT
  Age: 60 Year
  Sex: Female
  Weight: 55 kg

DRUGS (4)
  1. TEMOZOLOMIDE [Suspect]
     Active Substance: TEMOZOLOMIDE
     Indication: Neuroendocrine tumour
     Dosage: DURING THERAPY CYCLE 13 THE PATIENT TOOK 270 MG OF TEMOZOLOMIDE PER DAY, ON DAYS 10-11-12-13-14 OF T
     Route: 048
     Dates: start: 20230819, end: 20230823
  2. CAPECITABINE [Suspect]
     Active Substance: CAPECITABINE
     Indication: Neuroendocrine tumour
     Dosage: DURING CYCLE 13 OF THERAPY THE PATIENT TOOK 2000 MG OF CAPECITABINE PER DAY FOR 14 DAYS, STARTING FR
     Route: 048
     Dates: start: 20230810, end: 20230823
  3. PANTOPRAZOLE [Concomitant]
     Active Substance: PANTOPRAZOLE
     Indication: Product used for unknown indication
     Dosage: THE PATIENT TAKES PANTOPRAZOLE 40 MG, ONCE A DAY.
     Route: 048
  4. DEURSIL [Concomitant]
     Active Substance: URSODIOL
     Indication: Product used for unknown indication
     Dosage: THE PATIENT TAKES DEURSIL 300 MG, 2 TIMES A DAY.
     Route: 048

REACTIONS (4)
  - Platelet count decreased [Not Recovered/Not Resolved]
  - Decreased appetite [Not Recovered/Not Resolved]
  - Nausea [Not Recovered/Not Resolved]
  - Asthenia [Not Recovered/Not Resolved]

NARRATIVE: CASE EVENT DATE: 20231123
